FAERS Safety Report 6165419-X (Version None)
Quarter: 2009Q2

REPORT INFORMATION
  Report Type: 
  Country: None (occurrence: None)
  Receive Date: 20090423
  Receipt Date: 20090421
  Transmission Date: 20091009
  Serious: Yes (Disabling, Other)
  Sender: FDA-Public Use
  Company Number: US-BRISTOL-MYERS SQUIBB COMPANY-14471197

PATIENT
  Age: 60 Year
  Sex: Female

DRUGS (17)
  1. ABILIFY [Suspect]
     Indication: MAJOR DEPRESSION
     Dosage: REDUCED TO 1 MG, QAM
     Route: 048
     Dates: start: 20080807, end: 20090105
  2. CYMBALTA [Suspect]
     Indication: DEPRESSION
     Dosage: 30MG QAM
     Dates: start: 20060725
  3. ADDERALL 10 [Suspect]
     Indication: DEPRESSION
     Dates: start: 20070220
  4. PAMELOR [Suspect]
     Indication: DEPRESSION
     Dosage: 30MG QHS
  5. LYRICA [Concomitant]
     Dosage: QHS; DECREASED AFTER STARTING ABILIFY
  6. ACIPHEX [Concomitant]
  7. AVANDIA [Concomitant]
  8. DARVOCET [Concomitant]
  9. KLOR-CON [Concomitant]
  10. LASIX [Concomitant]
  11. NITROGLYCERIN [Concomitant]
  12. NORVASC [Concomitant]
  13. TENORMIN [Concomitant]
  14. ZETIA [Concomitant]
  15. ZOCOR [Concomitant]
  16. CALCIUM + VITAMIN D [Concomitant]
  17. VALIUM [Concomitant]
     Dosage: 1 DF = 5-10MG

REACTIONS (5)
  - CHEST PAIN [None]
  - DYSPNOEA EXERTIONAL [None]
  - OEDEMA PERIPHERAL [None]
  - ORTHOPNOEA [None]
  - TREATMENT NONCOMPLIANCE [None]
